FAERS Safety Report 7001652-2 (Version None)
Quarter: 2010Q3

REPORT INFORMATION
  Report Type: 
  Country: None (occurrence: None)
  Receive Date: 20100916
  Receipt Date: 20100903
  Transmission Date: 20110219
  Serious: Yes (Death, Hospitalization)
  Sender: FDA-Public Use
  Company Number: 2010AC000279

PATIENT
  Age: 83 Year
  Sex: Male

DRUGS (18)
  1. DIGOXIN [Suspect]
     Dosage: PO
     Route: 048
     Dates: start: 20040301, end: 20071201
  2. DIGOXIN [Suspect]
     Dosage: 0.125 MG; QD; PO
     Route: 048
     Dates: start: 20030601
  3. HYDROCODONE [Concomitant]
  4. AMIODARONE [Concomitant]
  5. HEPARIN [Concomitant]
  6. AUGMENTIN '125' [Concomitant]
  7. UNASYN [Concomitant]
  8. SOTALOL [Concomitant]
  9. LISINOPRIL [Concomitant]
  10. LASIX [Concomitant]
  11. METOPROLOL TARTRATE [Concomitant]
  12. LOPRESSOR [Concomitant]
  13. ZESTRIL [Concomitant]
  14. DEPO-MEDROL [Concomitant]
  15. COUMADIN [Concomitant]
  16. LOVENOX [Concomitant]
  17. MORPHINE SULFATE [Concomitant]
  18. MEXILETINE [Concomitant]

REACTIONS (35)
  - ACUTE CORONARY SYNDROME [None]
  - ACUTE HEPATIC FAILURE [None]
  - ADHESION [None]
  - ARTHRALGIA [None]
  - ATRIAL FIBRILLATION [None]
  - CARDIAC FAILURE CONGESTIVE [None]
  - CHEST PAIN [None]
  - CIRCULATORY COLLAPSE [None]
  - DEEP VEIN THROMBOSIS [None]
  - DIVERTICULITIS [None]
  - ELECTROLYTE IMBALANCE [None]
  - FEELING ABNORMAL [None]
  - HEPATIC FAILURE [None]
  - HYDROCELE [None]
  - HYPOKALAEMIA [None]
  - INGUINAL HERNIA [None]
  - INTESTINAL ISCHAEMIA [None]
  - ISCHAEMIC CARDIOMYOPATHY [None]
  - JOINT EFFUSION [None]
  - LOWER LIMB FRACTURE [None]
  - MULTIPLE INJURIES [None]
  - PALPITATIONS [None]
  - PARAESTHESIA [None]
  - PULSE ABSENT [None]
  - RENAL FAILURE ACUTE [None]
  - RENAL TUBULAR NECROSIS [None]
  - RESPIRATORY ARREST [None]
  - SHOCK [None]
  - SKIN ULCER [None]
  - SMALL INTESTINAL OBSTRUCTION [None]
  - SUPRAVENTRICULAR TACHYCARDIA [None]
  - VENTRICULAR EXTRASYSTOLES [None]
  - VENTRICULAR TACHYCARDIA [None]
  - VERTIGO [None]
  - VOLVULUS OF SMALL BOWEL [None]
